FAERS Safety Report 7600234-9 (Version None)
Quarter: 2011Q2

REPORT INFORMATION
  Report Type: 
  Country: None (occurrence: None)
  Receive Date: 20110624
  Receipt Date: 20110316
  Transmission Date: 20111010
  Serious: Yes (Other)
  Sender: FDA-Public Use
  Company Number: ALL1-2010-02240

PATIENT
  Age: 6 Year
  Sex: Male
  Weight: 36.9 kg

DRUGS (3)
  1. ALBUTEROL [Concomitant]
  2. BUDESONIDE [Concomitant]
  3. INTUNIV [Suspect]
     Indication: ATTENTION DEFICIT/HYPERACTIVITY DISORDER
     Dosage: 2 MG, ORAL
     Route: 048
     Dates: start: 20100301, end: 20100312

REACTIONS (1)
  - SINUS BRADYCARDIA [None]
